FAERS Safety Report 4358311-4 (Version None)
Quarter: 2004Q2

REPORT INFORMATION
  Report Type: 
  Country: None (occurrence: None)
  Receive Date: 20040514
  Receipt Date: 20001023
  Transmission Date: 20050107
  Serious: Yes (Hospitalization, Other)
  Sender: FDA-Public Use
  Company Number: US-MERCK-00101917

PATIENT
  Age: 67 Year
  Sex: Female

DRUGS (3)
  1. LITHOBID [Suspect]
     Route: 048
     Dates: start: 19910101, end: 20000101
  2. LITHOBID [Suspect]
     Route: 048
     Dates: start: 20000101
  3. VIOXX [Suspect]
     Indication: ARTHRITIS
     Route: 048
     Dates: start: 20000901

REACTIONS (9)
  - BLOOD CALCIUM INCREASED [None]
  - DRUG INTERACTION [None]
  - DRUG LEVEL INCREASED [None]
  - DYSARTHRIA [None]
  - HEMIPARESIS [None]
  - MENTAL STATUS CHANGES [None]
  - RENAL FAILURE [None]
  - RENAL NEOPLASM [None]
  - THERAPEUTIC AGENT TOXICITY [None]
